FAERS Safety Report 5592605-X (Version None)
Quarter: 2007Q4

REPORT INFORMATION
  Report Type: 
  Country: None (occurrence: None)
  Receive Date: 20071218
  Receipt Date: 20070521
  Transmission Date: 20080405
  Serious: Yes (Hospitalization, Other)
  Sender: FDA-Public Use
  Company Number: 2005049266

PATIENT
  Age: 56 Year
  Sex: Female
  Weight: 149.7 kg

DRUGS (13)
  1. BEXTRA [Suspect]
     Indication: ARTHRALGIA
     Dosage: 40 MG (20 MG,2 IN 1 D),ORAL
     Route: 048
     Dates: start: 20030118
  2. BEXTRA [Suspect]
     Indication: SWELLING
     Dosage: 40 MG (20 MG,2 IN 1 D),ORAL
     Route: 048
     Dates: start: 20030118
  3. DUONEB [Concomitant]
  4. ASPIRIN [Concomitant]
  5. COREG [Concomitant]
  6. AEROBID [Concomitant]
  7. LASIX [Concomitant]
  8. METFORMIN HCL [Concomitant]
  9. DARVOCET-N 100 [Concomitant]
  10. ALTACE [Concomitant]
  11. NASACORT [Concomitant]
  12. COUMADIN [Concomitant]
  13. OXYGEN (OXYGEN) [Concomitant]

REACTIONS (1)
  - DEEP VEIN THROMBOSIS [None]
